FAERS Safety Report 4699668-4 (Version None)
Quarter: 2005Q2

REPORT INFORMATION
  Report Type: 
  Country: None (occurrence: None)
  Receive Date: 20050623
  Receipt Date: 20050613
  Transmission Date: 20051028
  Serious: No
  Sender: FDA-Public Use
  Company Number: 200502724

PATIENT

DRUGS (2)
  1. ALESION (EPINASTINE) [Suspect]
     Indication: RHINITIS ALLERGIC
     Dosage: 20 MG QD PO
     Route: 048
     Dates: start: 20050322, end: 20050322
  2. GRIMAC [Suspect]
     Indication: DRUG USE FOR UNKNOWN INDICATION

REACTIONS (1)
  - ANAPHYLACTIC SHOCK [None]
